FAERS Safety Report 6391217-8 (Version None)
Quarter: 2009Q4

REPORT INFORMATION
  Report Type: 
  Country: None (occurrence: None)
  Receive Date: 20091007
  Receipt Date: 20090923
  Transmission Date: 20100525
  Serious: Yes (Other)
  Sender: FDA-Public Use
  Company Number: AU-PFIZER INC-2009255349

PATIENT
  Age: 83 Year

DRUGS (2)
  1. HEPARIN [Suspect]
     Indication: PROPHYLAXIS
     Dosage: 500 IU, HOURLY
     Route: 010
  2. HEPARIN [Suspect]
     Dosage: 1000 IU, SINGLE
     Route: 010

REACTIONS (3)
  - DRUG INEFFECTIVE [None]
  - HAEMOGLOBIN DECREASED [None]
  - THROMBOSIS IN DEVICE [None]
